FAERS Safety Report 4546689-8 (Version None)
Quarter: 2005Q1

REPORT INFORMATION
  Report Type: 
  Country: None (occurrence: None)
  Receive Date: 20050105
  Receipt Date: 20041223
  Transmission Date: 20050727
  Serious: Yes (Hospitalization)
  Sender: FDA-Public Use
  Company Number: SUS1-2004-00895

PATIENT
  Age: 66 Year
  Sex: Female

DRUGS (11)
  1. PENTASA [Suspect]
     Indication: CROHN'S DISEASE
     Dosage: 3 G, DAILY, ORAL
     Route: 048
     Dates: start: 19960801, end: 20041102
  2. INFLIXIMAB (INFLIXIMAB) [Concomitant]
  3. ISOSORBIDE DINITRATE [Concomitant]
  4. DILTIAZEM HYDROCHLORIDE [Concomitant]
  5. LANSOPRAZOLE [Concomitant]
  6. FUROSEMIDE [Concomitant]
  7. POTASSIUM CHLORIDE [Concomitant]
  8. MAGNYL/OLD FORM ^DAK^ (ACETYLSALICYLIC ACID, MAGNESIUM OXIDE) [Concomitant]
  9. SIMVASTATIN [Concomitant]
  10. BENDROFLUMETHIAZIDE (BENDROFLUMETHIAZIDE) [Concomitant]
  11. NITROGLYCERIN [Concomitant]

REACTIONS (2)
  - BLOOD CREATINE INCREASED [None]
  - BLOOD UREA INCREASED [None]
